FAERS Safety Report 25540645 (Version 1)
Quarter: 2025Q3

REPORT INFORMATION
  Report Type: Spontaneous
  Country: GB (occurrence: GB)
  Receive Date: 20250710
  Receipt Date: 20250710
  Transmission Date: 20251021
  Serious: Yes (Other)
  Sender: PFIZER
  Company Number: None

PATIENT
  Sex: Female

DRUGS (1)
  1. METHOTREXATE SODIUM [Suspect]
     Active Substance: METHOTREXATE SODIUM

REACTIONS (5)
  - Injection site bruising [Unknown]
  - Hepatic enzyme increased [Unknown]
  - Peripheral swelling [Unknown]
  - Vomiting [Unknown]
  - Abdominal pain [Unknown]
